FAERS Safety Report 9133512 (Version 4)
Quarter: 2017Q4

REPORT INFORMATION
  Report Type: Spontaneous
  Country: IE (occurrence: IE)
  Receive Date: 20130301
  Receipt Date: 20171019
  Transmission Date: 20180321
  Serious: Yes (Other)
  Sender: FDA-Public Use
  Company Number: IE-ASTRAZENECA-2013SE11661

PATIENT
  Age: 60 Year
  Sex: Male

DRUGS (12)
  1. VORICONAZOLE. [Interacting]
     Active Substance: VORICONAZOLE
     Indication: ESCHERICHIA INFECTION
     Route: 042
     Dates: start: 20121101, end: 20121113
  2. COLOMYCIN [Concomitant]
     Active Substance: COLISTIN
     Indication: ESCHERICHIA INFECTION
     Route: 065
  3. LINEZOLID. [Interacting]
     Active Substance: LINEZOLID
     Indication: ESCHERICHIA INFECTION
     Route: 065
     Dates: end: 20121113
  4. AMIKACIN [Concomitant]
     Active Substance: AMIKACIN
     Indication: ESCHERICHIA INFECTION
     Route: 065
  5. PARACETAMOL [Interacting]
     Active Substance: ACETAMINOPHEN
     Route: 065
  6. LINEZOLID. [Interacting]
     Active Substance: LINEZOLID
     Indication: SEPSIS
     Route: 065
     Dates: end: 20121113
  7. GENTAMICIN. [Concomitant]
     Active Substance: GENTAMICIN
     Indication: ESCHERICHIA INFECTION
     Route: 065
  8. ESOMEPRAZOLE [Suspect]
     Active Substance: ESOMEPRAZOLE
     Route: 048
  9. MEROPENEM. [Interacting]
     Active Substance: MEROPENEM
     Indication: ESCHERICHIA INFECTION
     Route: 042
     Dates: start: 20121105, end: 20121112
  10. GENTAMICIN. [Concomitant]
     Active Substance: GENTAMICIN
     Indication: ESCHERICHIA INFECTION
     Route: 065
  11. LIBRIUM [Interacting]
     Active Substance: CHLORDIAZEPOXIDE HYDROCHLORIDE
     Route: 065
  12. DIFENE [Interacting]
     Active Substance: DICLOFENAC SODIUM
     Route: 065

REACTIONS (4)
  - Renal impairment [Unknown]
  - Liver function test increased [Recovered/Resolved]
  - Hyperhidrosis [Recovered/Resolved]
  - Drug interaction [Unknown]
